FAERS Safety Report 5780252-6 (Version None)
Quarter: 2008Q2

REPORT INFORMATION
  Report Type: 
  Country: None (occurrence: None)
  Receive Date: 20080620
  Receipt Date: 20080614
  Transmission Date: 20081010
  Serious: Yes (Hospitalization)
  Sender: FDA-Public Use
  Company Number: PHHY2008MX11168

PATIENT
  Sex: Female

DRUGS (1)
  1. DIOVAN HCT [Suspect]
     Indication: HYPERTENSION
     Dosage: TABLETS OF 160/25 MG PER DAY
     Route: 048
     Dates: end: 20080501

REACTIONS (1)
  - MYOCARDIAL INFARCTION [None]
